FAERS Safety Report 5607005-3 (Version None)
Quarter: 2008Q1

REPORT INFORMATION
  Report Type: 
  Country: None (occurrence: None)
  Receive Date: 20080129
  Receipt Date: 20080122
  Transmission Date: 20080703
  Serious: Yes (Other)
  Sender: FDA-Public Use
  Company Number: JP-PFIZER INC-2008007164

PATIENT
  Sex: Male

DRUGS (1)
  1. ATARAX [Suspect]
     Route: 048

REACTIONS (1)
  - BLOOD GLUCOSE INCREASED [None]
